FAERS Safety Report 4476835-6 (Version None)
Quarter: 2004Q4

REPORT INFORMATION
  Report Type: 
  Country: None (occurrence: None)
  Receive Date: 20041013
  Receipt Date: 20041001
  Transmission Date: 20050328
  Serious: Yes (Death)
  Sender: FDA-Public Use
  Company Number: HQWYE707512OCT04

PATIENT
  Age: 41 Year

DRUGS (2)
  1. ADVIL [Suspect]
     Dosage: ORAL
     Route: 048
  2. ACETAMINOPHEN/HYDROCODONE (ACETAMINOPHEN/HYDROCODONE) [Suspect]
     Dosage: ORAL
     Route: 048

REACTIONS (3)
  - COMPLETED SUICIDE [None]
  - INTENTIONAL MISUSE [None]
  - INTENTIONAL OVERDOSE [None]
